FAERS Safety Report 25871074 (Version 1)
Quarter: 2025Q4

REPORT INFORMATION
  Report Type: Spontaneous
  Country: US (occurrence: US)
  Receive Date: 20251001
  Receipt Date: 20251001
  Transmission Date: 20260118
  Serious: No
  Sender: RECKITT BENCKISER
  Company Number: US-Indivior Limited-INDV-159525-2025

PATIENT
  Age: 38 Year
  Sex: Female

DRUGS (2)
  1. SUBLOCADE [Suspect]
     Active Substance: BUPRENORPHINE
     Indication: Drug dependence
     Dosage: 300 MILLIGRAM, QMO
     Route: 058
     Dates: start: 20250218
  2. SUBLOCADE [Suspect]
     Active Substance: BUPRENORPHINE

REACTIONS (3)
  - Burning sensation [Unknown]
  - Dyspnoea [Unknown]
  - Hyperhidrosis [Unknown]
